FAERS Safety Report 17179132 (Version 1)
Quarter: 2019Q4

REPORT INFORMATION
  Report Type: Spontaneous
  Country: CA (occurrence: CA)
  Receive Date: 20191219
  Receipt Date: 20191219
  Transmission Date: 20200122
  Serious: Yes (Other)
  Sender: FDA-Public Use
  Company Number: CA-AMERICAN REGENT INC-20191317

PATIENT
  Age: 35 Year
  Sex: Female

DRUGS (1)
  1. VENOFER [Suspect]
     Active Substance: IRON SUCROSE
     Indication: IRON DEFICIENCY ANAEMIA
     Dosage: 200 MILLIGRAM WEEKLY
     Route: 042
     Dates: start: 20190122, end: 20190122

REACTIONS (7)
  - Presyncope [Recovered/Resolved]
  - Exposure during pregnancy [Unknown]
  - Blood pressure decreased [Recovered/Resolved]
  - Dizziness [Recovered/Resolved]
  - Feeling hot [Recovered/Resolved]
  - Flushing [Recovered/Resolved]
  - Nausea [Recovered/Resolved]

NARRATIVE: CASE EVENT DATE: 20190122
